FAERS Safety Report 4688501-2 (Version None)
Quarter: 2005Q2

REPORT INFORMATION
  Report Type: 
  Country: None (occurrence: None)
  Receive Date: 20050613
  Receipt Date: 20050531
  Transmission Date: 20051028
  Serious: Yes (Hospitalization, Other)
  Sender: FDA-Public Use
  Company Number: GB-JNJFOC-20050404393

PATIENT
  Sex: Female
  Weight: 59 kg

DRUGS (10)
  1. REMICADE [Suspect]
     Indication: RHEUMATOID ARTHRITIS
     Route: 042
  2. METOCLOPRAMIDE [Concomitant]
  3. PREDNISOLONE [Concomitant]
  4. LOSEC [Concomitant]
  5. NABUMETONE [Concomitant]
  6. AMITRIPTYLINE [Concomitant]
  7. DIDRONEL [Concomitant]
  8. ACETAMINOPHEN [Concomitant]
  9. LANSOPRAZOLE [Concomitant]
  10. ROFECOXIB [Concomitant]

REACTIONS (1)
  - GASTROENTERITIS [None]
